FAERS Safety Report 8430653-2 (Version None)
Quarter: 2012Q2

REPORT INFORMATION
  Report Type: 
  Country: None (occurrence: None)
  Receive Date: 20120612
  Receipt Date: 20120605
  Transmission Date: 20120825
  Serious: Yes (Other)
  Sender: FDA-Public Use
  Company Number: US-UCBSA-059117

PATIENT
  Age: 33 Year
  Sex: Female

DRUGS (2)
  1. CIMZIA [Suspect]
     Dosage: UNKNOWN DOSE
     Dates: start: 20111101, end: 20111201
  2. CIMZIA [Suspect]
     Dosage: UNKNOWN DOSE
     Dates: start: 20110501, end: 20110801

REACTIONS (2)
  - RASH [None]
  - PSORIASIS [None]
